FAERS Safety Report 24228413 (Version 1)
Quarter: 2024Q3

REPORT INFORMATION
  Report Type: Spontaneous
  Country: GB (occurrence: GB)
  Receive Date: 20240820
  Receipt Date: 20240820
  Transmission Date: 20241016
  Serious: Yes (Death, Other)
  Sender: MERCK
  Company Number: GB-009507513-2408GBR005954

PATIENT
  Sex: Male

DRUGS (1)
  1. PEMBROLIZUMAB [Suspect]
     Active Substance: PEMBROLIZUMAB
     Indication: Renal cell carcinoma
     Dosage: 400 MG EVERY 6 WEEKS

REACTIONS (2)
  - Multiple organ dysfunction syndrome [Fatal]
  - Immune-mediated adverse reaction [Fatal]
